FAERS Safety Report 17665717 (Version 3)
Quarter: 2020Q3

REPORT INFORMATION
  Report Type: Spontaneous
  Country: DE (occurrence: DE)
  Receive Date: 20200414
  Receipt Date: 20200701
  Transmission Date: 20201102
  Serious: Yes (Other)
  Sender: FDA-Public Use
  Company Number: NVSC2020DE099123

PATIENT
  Age: 18 Year
  Sex: Female

DRUGS (7)
  1. TACROLIMUS. [Suspect]
     Active Substance: TACROLIMUS
     Indication: RENAL TRANSPLANT
     Dosage: UNK
     Route: 065
  2. SIROLIMUS. [Suspect]
     Active Substance: SIROLIMUS
     Indication: IMMUNOSUPPRESSION
  3. ENVARSUS XR [Suspect]
     Active Substance: TACROLIMUS
     Indication: IMMUNOSUPPRESSION
     Dosage: UNK
     Route: 065
  4. PREDNISOLONE. [Suspect]
     Active Substance: PREDNISOLONE
     Indication: IMMUNOSUPPRESSION
  5. TACROLIMUS. [Suspect]
     Active Substance: TACROLIMUS
     Indication: IMMUNOSUPPRESSANT DRUG THERAPY
  6. PREDNISOLONE. [Suspect]
     Active Substance: PREDNISOLONE
     Indication: RENAL TRANSPLANT
     Dosage: UNK
     Route: 065
  7. SIROLIMUS. [Suspect]
     Active Substance: SIROLIMUS
     Indication: RENAL TRANSPLANT
     Dosage: UNK
     Route: 065

REACTIONS (5)
  - Polyomavirus viraemia [Recovered/Resolved]
  - Product use issue [Unknown]
  - Polyomavirus-associated nephropathy [Unknown]
  - BK virus infection [Recovered/Resolved]
  - Polyomavirus test positive [Unknown]
